FAERS Safety Report 4824030-0 (Version None)
Quarter: 2005Q4

REPORT INFORMATION
  Report Type: 
  Country: None (occurrence: None)
  Receive Date: 20051108
  Receipt Date: 20051026
  Transmission Date: 20060501
  Serious: Yes (Hospitalization, Other)
  Sender: FDA-Public Use
  Company Number: BEWYE888408AUG05

PATIENT
  Age: 54 Year
  Sex: Male

DRUGS (4)
  1. RAPAMUNE [Suspect]
     Indication: PROPHYLAXIS AGAINST TRANSPLANT REJECTION
     Dosage: 4 MG 1X PER 1 DAY ORAL
     Route: 048
     Dates: end: 20050805
  2. MYCOPHENOLATE MOFETIL (MYCOPHENOLATE MOFETIL) [Concomitant]
  3. MEDROL [Concomitant]
  4. ZENAPAX [Concomitant]

REACTIONS (4)
  - GRAFT DYSFUNCTION [None]
  - HYDRONEPHROSIS [None]
  - KIDNEY TRANSPLANT REJECTION [None]
  - URETERIC STENOSIS [None]
